FAERS Safety Report 20522756 (Version 1)
Quarter: 2022Q1

REPORT INFORMATION
  Report Type: Spontaneous
  Country: US (occurrence: US)
  Receive Date: 20220226
  Receipt Date: 20220226
  Transmission Date: 20220423
  Serious: Yes (Other)
  Sender: FDA-Public Use
  Company Number: US-NOVARTISPH-NVSC2022US044784

PATIENT
  Age: 47 Year
  Sex: Male

DRUGS (2)
  1. RANITIDINE [Suspect]
     Active Substance: RANITIDINE
     Indication: Urticaria
     Dosage: 150 MG,,,DAILY,
     Route: 048
     Dates: start: 201211, end: 201909
  2. RANITIDINE [Suspect]
     Active Substance: RANITIDINE
     Indication: Urticaria
     Dosage: 150 MG,,,DAILY,
     Route: 048
     Dates: start: 201211, end: 201909

REACTIONS (2)
  - Prostate cancer [Unknown]
  - Incorrect dose administered [Unknown]

NARRATIVE: CASE EVENT DATE: 20140101
